FAERS Safety Report 13473021 (Version 2)
Quarter: 2017Q2

REPORT INFORMATION
  Report Type: Spontaneous
  Country: AR (occurrence: AR)
  Receive Date: 20170424
  Receipt Date: 20170427
  Transmission Date: 20170830
  Serious: Yes (Other)
  Sender: FDA-Public Use
  Company Number: AR-PFIZER INC-2017178336

PATIENT
  Age: 52 Year
  Sex: Male

DRUGS (4)
  1. ZOLOFT [Suspect]
     Active Substance: SERTRALINE HYDROCHLORIDE
     Dosage: 25 MG, UNK
  2. ROSUVASTATINA /01588601/ [Concomitant]
     Active Substance: ROSUVASTATIN
     Dosage: 10 UNIT UNKNOWN, DAILY
  3. NEXIUM [Concomitant]
     Active Substance: ESOMEPRAZOLE MAGNESIUM
     Dosage: UNK, DAILY
  4. CLONAZEPAN [Concomitant]
     Active Substance: CLONAZEPAM
     Dosage: 0.5 MG, DAILY

REACTIONS (1)
  - Homicide [Unknown]

NARRATIVE: CASE EVENT DATE: 2016
